FAERS Safety Report 9357807 (Version 4)
Quarter: 2013Q3

REPORT INFORMATION
  Report Type: Spontaneous
  Country: IT (occurrence: IT)
  Receive Date: 20130620
  Receipt Date: 20130916
  Transmission Date: 20140515
  Serious: Yes (Death, Other)
  Sender: FDA-Public Use
  Company Number: IT-ELI_LILLY_AND_COMPANY-IT201306004843

PATIENT
  Sex: Male
  Weight: 91 kg

DRUGS (6)
  1. RISPERIDONE [Concomitant]
     Dosage: UNK
     Dates: end: 20130521
  2. ZYPREXA VELOTAB [Suspect]
     Indication: BEHAVIOURAL AND PSYCHIATRIC SYMPTOMS OF DEMENTIA
     Dosage: 5 MG, QD
     Route: 048
     Dates: start: 20130521, end: 20130527
  3. DEPAKIN CHRONO [Concomitant]
     Indication: ABNORMAL BEHAVIOUR
     Dosage: 300 MG, BID
     Route: 048
  4. COUMADIN [Concomitant]
     Indication: ATRIAL FIBRILLATION
     Dosage: 5 MG, UNK
     Route: 048
  5. SERENASE                           /00027401/ [Concomitant]
     Dosage: 10 GTT, TID
  6. COAPROVEL [Concomitant]
     Dosage: 1 DF, QD

REACTIONS (5)
  - Sepsis [Fatal]
  - Agranulocytosis [Fatal]
  - Hyperpyrexia [Fatal]
  - Arthralgia [Unknown]
  - Off label use [Not Recovered/Not Resolved]
